FAERS Safety Report 10273451 (Version 1)
Quarter: 2014Q2

REPORT INFORMATION
  Report Type: Spontaneous
  Country: GB (occurrence: None)
  Receive Date: 20140630
  Receipt Date: 20140630
  Transmission Date: 20141212
  Serious: Yes (Hospitalization, Disabling, Other)
  Sender: FDA-Public Use
  Company Number: AUR-APL-2014-06730

PATIENT
  Age: 45 Year
  Sex: Male
  Weight: 86.2 kg

DRUGS (3)
  1. SIMVASTATIN [Suspect]
     Indication: HYPERCHOLESTEROLAEMIA
     Route: 048
     Dates: start: 20131001
  2. ATORVASTATIN (ATORVASTATIN) [Suspect]
     Indication: HYPERCHOLESTEROLAEMIA
     Route: 048
     Dates: start: 20131001
  3. SINUTAB [Concomitant]

REACTIONS (4)
  - Arthralgia [None]
  - Abasia [None]
  - Joint crepitation [None]
  - Cartilage injury [None]
